FAERS Safety Report 21287070 (Version 1)
Quarter: 2022Q3

REPORT INFORMATION
  Report Type: Spontaneous
  Country: US (occurrence: None)
  Receive Date: 20220902
  Receipt Date: 20220902
  Transmission Date: 20221027
  Serious: Yes (Hospitalization)
  Sender: FDA-Public Use
  Company Number: None

PATIENT
  Age: 84 Year
  Sex: Male
  Weight: 74.39 kg

DRUGS (1)
  1. MIRALAX [Suspect]
     Active Substance: POLYETHYLENE GLYCOL 3350

REACTIONS (8)
  - Memory impairment [None]
  - Pain [None]
  - Dyspnoea [None]
  - Syncope [None]
  - Fall [None]
  - Cervical vertebral fracture [None]
  - Cerebral disorder [None]
  - Suicidal ideation [None]

NARRATIVE: CASE EVENT DATE: 20220805
